FAERS Safety Report 4289443-7 (Version None)
Quarter: 2004Q1

REPORT INFORMATION
  Report Type: 
  Country: None (occurrence: None)
  Receive Date: 20040203
  Receipt Date: 20030822
  Transmission Date: 20041129
  Serious: Yes (Other)
  Sender: FDA-Public Use
  Company Number: 200322758BWH

PATIENT
  Age: 58 Year
  Sex: Female
  Weight: 90.7194 kg

DRUGS (3)
  1. AVELOX [Suspect]
     Indication: PHARYNGOLARYNGEAL PAIN
     Dosage: 400 MG, QD, ORAL
     Route: 048
     Dates: start: 20030811, end: 20030812
  2. AVELOX [Suspect]
     Indication: RESPIRATORY TRACT CONGESTION
     Dosage: 400 MG, QD, ORAL
     Route: 048
     Dates: start: 20030811, end: 20030812
  3. TUMS [Concomitant]

REACTIONS (6)
  - DRY MOUTH [None]
  - HYPERSENSITIVITY [None]
  - HYPOAESTHESIA [None]
  - HYPOAESTHESIA ORAL [None]
  - NERVOUSNESS [None]
  - SWOLLEN TONGUE [None]
